FAERS Safety Report 8815189 (Version 2)
Quarter: 2013Q1

REPORT INFORMATION
  Report Type: Spontaneous
  Country: US (occurrence: US)
  Receive Date: 20120928
  Receipt Date: 20130116
  Transmission Date: 20140127
  Serious: Yes (Other)
  Sender: FDA-Public Use
  Company Number: US-JNJFOC-20120910380

PATIENT
  Sex: Female
  Weight: 90.72 kg

DRUGS (5)
  1. XARELTO [Suspect]
     Indication: CEREBROVASCULAR ACCIDENT
     Dosage: LAST DOSE TAKEN AT 7AM
     Route: 048
     Dates: start: 201206, end: 20120826
  2. XARELTO [Suspect]
     Indication: ATRIAL FIBRILLATION
     Dosage: LAST DOSE TAKEN AT 7AM
     Route: 048
     Dates: start: 201206, end: 20120826
  3. XARELTO [Suspect]
     Indication: CORONARY ARTERY BYPASS
     Dosage: LAST DOSE TAKEN AT 7AM
     Route: 048
     Dates: start: 201206, end: 20120826
  4. ASPIRIN [Suspect]
     Indication: PRODUCT USED FOR UNKNOWN INDICATION
  5. PLAVIX [Suspect]
     Indication: PRODUCT USED FOR UNKNOWN INDICATION

REACTIONS (2)
  - Ulcer [Recovered/Resolved]
  - Faeces discoloured [Recovered/Resolved]
